FAERS Safety Report 5598960-9 (Version None)
Quarter: 2008Q1

REPORT INFORMATION
  Report Type: 
  Country: None (occurrence: None)
  Receive Date: 20080122
  Receipt Date: 20080111
  Transmission Date: 20080703
  Serious: Yes (Hospitalization)
  Sender: FDA-Public Use
  Company Number: FR-BOEHRINGER INGELHEIM PHARMACEUTICALS, INC.-2008-BP-00869YA

PATIENT
  Sex: Male

DRUGS (2)
  1. TAMSULOSIN HCL [Suspect]
     Indication: PROSTATIC ADENOMA
     Route: 048
     Dates: start: 20071109, end: 20071116
  2. CIBLOR [Suspect]
     Route: 048
     Dates: start: 20071116, end: 20071116

REACTIONS (5)
  - GENERAL PHYSICAL HEALTH DETERIORATION [None]
  - GINGIVAL ULCERATION [None]
  - HYPERTHERMIA [None]
  - PENILE ULCERATION [None]
  - RASH MACULO-PAPULAR [None]
